FAERS Safety Report 20440053 (Version 7)
Quarter: 2024Q4

REPORT INFORMATION
  Report Type: Spontaneous
  Country: DE (occurrence: DE)
  Receive Date: 20220207
  Receipt Date: 20241002
  Transmission Date: 20250115
  Serious: Yes (Hospitalization, Other)
  Sender: NOVARTIS
  Company Number: DE-NOVARTISPH-NVSC2022DE025527

PATIENT
  Age: 59 Year
  Sex: Female

DRUGS (4)
  1. MAYZENT [Suspect]
     Active Substance: SIPONIMOD
     Indication: Secondary progressive multiple sclerosis
     Dosage: 2 MG, QD
     Route: 065
     Dates: start: 20210708, end: 20210805
  2. MAYZENT [Suspect]
     Active Substance: SIPONIMOD
     Indication: Multiple sclerosis
  3. DALFAMPRIDINE [Concomitant]
     Active Substance: DALFAMPRIDINE
     Indication: Gait inability
     Dosage: 10 MG, QD
     Route: 065
     Dates: start: 201609
  4. BACLOFEN [Concomitant]
     Active Substance: BACLOFEN
     Indication: Muscle spasticity
     Dosage: 25 MG, QD
     Route: 065
     Dates: start: 20210416

REACTIONS (3)
  - Breast cancer [Recovered/Resolved]
  - Weight decreased [Unknown]
  - Tumour pain [Unknown]

NARRATIVE: CASE EVENT DATE: 20210805
